APPROVED DRUG PRODUCT: OXYCODONE AND ACETAMINOPHEN
Active Ingredient: ACETAMINOPHEN; OXYCODONE HYDROCHLORIDE
Strength: 325MG;5MG
Dosage Form/Route: TABLET;ORAL
Application: A207333 | Product #001
Applicant: LANNETT CO INC
Approved: Sep 25, 2017 | RLD: No | RS: No | Type: DISCN